FAERS Safety Report 10756670 (Version 2)
Quarter: 2015Q1

REPORT INFORMATION
  Report Type: Report from Study
  Country: AR (occurrence: AR)
  Receive Date: 20150202
  Receipt Date: 20150304
  Transmission Date: 20150721
  Serious: Yes (Other)
  Sender: FDA-Public Use
  Company Number: PHHY2015AR011411

PATIENT
  Sex: Male

DRUGS (2)
  1. TRILEPTAL [Suspect]
     Active Substance: OXCARBAZEPINE
     Indication: HIPPOCAMPAL SCLEROSIS
     Dosage: 2 DF, QD
     Route: 065
     Dates: start: 201501
  2. TRILEPTAL [Suspect]
     Active Substance: OXCARBAZEPINE
     Indication: EPILEPSY
     Dosage: 4 DF, QD
     Route: 065
     Dates: start: 201411, end: 201412

REACTIONS (9)
  - Daydreaming [Not Recovered/Not Resolved]
  - Autism [Not Recovered/Not Resolved]
  - Petit mal epilepsy [Unknown]
  - Dysphemia [Not Recovered/Not Resolved]
  - Muscle spasms [Unknown]
  - Dizziness [Not Recovered/Not Resolved]
  - Hypersomnia [Unknown]
  - Somnolence [Unknown]
  - Seizure [Not Recovered/Not Resolved]
